FAERS Safety Report 18121035 (Version 1)
Quarter: 2020Q3

REPORT INFORMATION
  Report Type: Spontaneous
  Country: US (occurrence: US)
  Receive Date: 20200807
  Receipt Date: 20200807
  Transmission Date: 20201103
  Serious: No
  Sender: FDA-Public Use
  Company Number: US-BIOGEN-2020BI00906843

PATIENT
  Sex: Female

DRUGS (1)
  1. TECFIDERA [Suspect]
     Active Substance: DIMETHYL FUMARATE
     Indication: MULTIPLE SCLEROSIS
     Route: 048
     Dates: start: 20190717, end: 20200728

REACTIONS (5)
  - Needle issue [Unknown]
  - Somnolence [Unknown]
  - Vitamin D decreased [Unknown]
  - Constipation [Unknown]
  - Anxiety [Unknown]
